FAERS Safety Report 21406300 (Version 3)
Quarter: 2022Q4

REPORT INFORMATION
  Report Type: Report from Study
  Country: NG (occurrence: NG)
  Receive Date: 20221004
  Receipt Date: 20221108
  Transmission Date: 20230112
  Serious: Yes (Hospitalization, Other)
  Sender: FDA-Public Use
  Company Number: NG-SA-SAC20220928001905

PATIENT
  Age: 40 Year
  Sex: Male

DRUGS (6)
  1. INSULIN GLARGINE [Suspect]
     Active Substance: INSULIN GLARGINE
     Indication: Type 2 diabetes mellitus
     Dosage: 10 IU, QD
     Route: 058
     Dates: start: 20220913
  2. INSULIN GLARGINE [Suspect]
     Active Substance: INSULIN GLARGINE
     Dosage: 20 IU, QD
     Route: 058
  3. GLUCOPHAGE [Concomitant]
     Active Substance: METFORMIN HYDROCHLORIDE
  4. AMLODIPINE [Concomitant]
     Active Substance: AMLODIPINE BESYLATE
  5. LISINOPRIL [Concomitant]
     Active Substance: LISINOPRIL
  6. METRONIDAZOLE [Concomitant]
     Active Substance: METRONIDAZOLE
     Route: 041

REACTIONS (6)
  - Wound complication [Not Recovered/Not Resolved]
  - Wound secretion [Not Recovered/Not Resolved]
  - Peripheral swelling [Unknown]
  - Cellulitis [Unknown]
  - Hyperglycaemia [Not Recovered/Not Resolved]
  - Oedema [Unknown]

NARRATIVE: CASE EVENT DATE: 20220925
